FAERS Safety Report 6987532-7 (Version None)
Quarter: 2010Q3

REPORT INFORMATION
  Report Type: 
  Country: None (occurrence: None)
  Receive Date: 20100916
  Receipt Date: 20100903
  Transmission Date: 20110219
  Serious: Yes (Other)
  Sender: FDA-Public Use
  Company Number: US-PFIZER INC-2010112492

PATIENT
  Sex: Female
  Weight: 120.18 kg

DRUGS (6)
  1. LYRICA [Suspect]
     Indication: FIBROMYALGIA
     Dosage: 75 MG, 2X/DAY
     Route: 048
     Dates: start: 20100830, end: 20100831
  2. EQUATE NIGHT TIME SLEEP AID [Concomitant]
     Indication: SLEEP DISORDER
     Dosage: 25 MG, UNK
     Route: 048
     Dates: start: 20070101
  3. IBUPROFEN [Concomitant]
     Indication: ARTHRALGIA
     Dosage: 200 MG, AS NEEDED
     Route: 048
  4. IBUPROFEN [Concomitant]
     Indication: BACK PAIN
  5. TYLENOL [Concomitant]
     Indication: BACK PAIN
     Dosage: UNK
  6. TYLENOL [Concomitant]
     Indication: ARTHRALGIA

REACTIONS (14)
  - CHILLS [None]
  - CONFUSIONAL STATE [None]
  - COORDINATION ABNORMAL [None]
  - CRYING [None]
  - DIARRHOEA [None]
  - DISTURBANCE IN ATTENTION [None]
  - DIZZINESS [None]
  - DRY MOUTH [None]
  - FATIGUE [None]
  - FEELING ABNORMAL [None]
  - HEADACHE [None]
  - MALAISE [None]
  - SOMNOLENCE [None]
  - SPEECH DISORDER [None]
